FAERS Safety Report 16066250 (Version 1)
Quarter: 2019Q1

REPORT INFORMATION
  Report Type: Spontaneous
  Country: US (occurrence: US)
  Receive Date: 20190212
  Receipt Date: 20190212
  Transmission Date: 20190418
  Serious: Yes (Hospitalization)
  Sender: FDA-Public Use
  Company Number: None

PATIENT
  Age: 63 Year
  Sex: Male

DRUGS (1)
  1. SULFAMETHOXAZOLE/TRIMETHOPRIM [Suspect]
     Active Substance: SULFAMETHOXAZOLE\TRIMETHOPRIM
     Indication: CELLULITIS
     Dosage: ?          OTHER DOSE:800-160 MG;?
     Route: 048
     Dates: start: 20180122, end: 20190201

REACTIONS (7)
  - Myalgia [None]
  - Influenza [None]
  - Drug eruption [None]
  - Hyponatraemia [None]
  - Viral rash [None]
  - Acute kidney injury [None]
  - Eosinophilia [None]

NARRATIVE: CASE EVENT DATE: 20190130
